FAERS Safety Report 8915117 (Version 1)
Quarter: 2012Q4

REPORT INFORMATION
  Report Type: 
  Country: SI (occurrence: SI)
  Receive Date: 20121119
  Receipt Date: 20121119
  Transmission Date: 20130627
  Serious: Yes (Hospitalization)
  Sender: FDA-Public Use
  Company Number: SI-JNJFOC-20121107306

PATIENT
  Age: 80 Year
  Sex: Female

DRUGS (4)
  1. XARELTO [Suspect]
     Indication: HIP ARTHROPLASTY
     Route: 048
     Dates: start: 20121005, end: 20121012
  2. ATORIS [Concomitant]
     Route: 048
  3. ENAP [Concomitant]
     Route: 048
  4. DIAPREL [Concomitant]
     Route: 048

REACTIONS (1)
  - Rash generalised [Recovered/Resolved]
